FAERS Safety Report 6030593-2 (Version None)
Quarter: 2008Q4

REPORT INFORMATION
  Report Type: 
  Country: None (occurrence: None)
  Receive Date: 20081222
  Receipt Date: 20080915
  Transmission Date: 20090506
  Serious: No
  Sender: FDA-Public Use
  Company Number: US-WYE-H05996608

PATIENT
  Age: 75 Year
  Sex: Female
  Weight: 74.91 kg

DRUGS (5)
  1. PRISTIQ [Suspect]
     Indication: BLEPHAROSPASM
     Dosage: 50 MG 1X PER 1 DAY, ORAL
     Route: 048
     Dates: start: 20080905
  2. XANAX [Concomitant]
  3. TENORMIN [Concomitant]
  4. COUMADIN [Concomitant]
  5. ATACAND [Concomitant]

REACTIONS (5)
  - CONDITION AGGRAVATED [None]
  - DRY MOUTH [None]
  - HYPERTENSION [None]
  - PHOTOPHOBIA [None]
  - VISION BLURRED [None]
